FAERS Safety Report 13739080 (Version 1)
Quarter: 2017Q3

REPORT INFORMATION
  Report Type: Spontaneous
  Country: US (occurrence: US)
  Receive Date: 20170710
  Receipt Date: 20170710
  Transmission Date: 20171127
  Serious: Yes (Other)
  Sender: FDA-Public Use
  Company Number: US-SAOL THERAPEUTICS-2017SAO00834

PATIENT
  Age: 53 Year
  Sex: Male

DRUGS (6)
  1. COMPOUNDED BACLOFEN [Suspect]
     Active Substance: BACLOFEN
     Indication: MUSCLE SPASTICITY
     Dosage: 459.8 ?G, \DAY
     Route: 037
     Dates: start: 20170329
  2. COMPOUNDED BACLOFEN [Suspect]
     Active Substance: BACLOFEN
     Indication: SPINAL CORD INJURY
     Dosage: 460 ?G, \DAY
     Route: 037
  3. BUPIVACAINE. [Suspect]
     Active Substance: BUPIVACAINE
     Dosage: 7.356 MG, \DAY
     Route: 037
     Dates: start: 20170329
  4. MORPHINE [Suspect]
     Active Substance: MORPHINE
     Dosage: 4.046 MG, \DAY
     Route: 037
     Dates: start: 20170329
  5. BUPIVACAINE. [Suspect]
     Active Substance: BUPIVACAINE
     Dosage: 7.4 MG, \DAY
     Route: 037
  6. MORPHINE [Suspect]
     Active Substance: MORPHINE
     Dosage: 4 MG, \DAY
     Route: 037

REACTIONS (4)
  - Device failure [Recovered/Resolved]
  - Device damage [Recovered/Resolved]
  - Device leakage [Recovered/Resolved]
  - Muscle spasticity [Recovered/Resolved]

NARRATIVE: CASE EVENT DATE: 20170429
